FAERS Safety Report 20046987 (Version 2)
Quarter: 2021Q4

REPORT INFORMATION
  Report Type: Report from Study
  Country: US (occurrence: US)
  Receive Date: 20211109
  Receipt Date: 20211123
  Transmission Date: 20220303
  Serious: Yes (Hospitalization)
  Sender: FDA-Public Use
  Company Number: US-INSMED, INC.-2021-09138-US

PATIENT
  Sex: Male

DRUGS (1)
  1. ARIKAYCE [Suspect]
     Active Substance: AMIKACIN
     Indication: Mycobacterium avium complex infection
     Dosage: 590 MILLIGRAM, QD
     Route: 055
     Dates: start: 20210728

REACTIONS (4)
  - Cardiac pacemaker insertion [Unknown]
  - Fluid imbalance [Unknown]
  - Sputum increased [Unknown]
  - Cough [Unknown]

NARRATIVE: CASE EVENT DATE: 20210101
